FAERS Safety Report 7286491-X (Version None)
Quarter: 2011Q1

REPORT INFORMATION
  Report Type: 
  Country: None (occurrence: None)
  Receive Date: 20110131
  Receipt Date: 20110120
  Transmission Date: 20110831
  Serious: Yes (Other)
  Sender: FDA-Public Use
  Company Number: 2011SP002961

PATIENT
  Age: 80 Year
  Sex: Male

DRUGS (3)
  1. DULERA TABLET [Suspect]
     Indication: ASTHMA
     Dosage: INH
     Route: 055
     Dates: start: 20101101, end: 20110120
  2. ZOCOR [Concomitant]
  3. PLAVIX [Concomitant]

REACTIONS (1)
  - HAEMOPTYSIS [None]
